FAERS Safety Report 7017631-5 (Version None)
Quarter: 2010Q3

REPORT INFORMATION
  Report Type: 
  Country: None (occurrence: None)
  Receive Date: 20100928
  Receipt Date: 20100916
  Transmission Date: 20110219
  Serious: Yes (Other)
  Sender: FDA-Public Use
  Company Number: US-PFIZER INC-2010117820

PATIENT
  Sex: Female
  Weight: 109 kg

DRUGS (1)
  1. LYRICA [Suspect]
     Indication: NEUROPATHY PERIPHERAL
     Dosage: 75 MG, 1X/DAY
     Route: 048
     Dates: end: 20100801

REACTIONS (10)
  - BALANCE DISORDER [None]
  - DIZZINESS [None]
  - DRY EYE [None]
  - DRY SKIN [None]
  - FALL [None]
  - IRRITABILITY [None]
  - MOOD SWINGS [None]
  - RIB FRACTURE [None]
  - SPINAL COLUMN STENOSIS [None]
  - VISION BLURRED [None]
